FAERS Safety Report 5930802-1 (Version None)
Quarter: 2008Q4

REPORT INFORMATION
  Report Type: 
  Country: None (occurrence: None)
  Receive Date: 20081027
  Receipt Date: 20081015
  Transmission Date: 20090506
  Serious: No
  Sender: FDA-Public Use
  Company Number: US-ROCHE-585233

PATIENT
  Sex: Female
  Weight: 56.7 kg

DRUGS (4)
  1. ACCUTANE [Suspect]
     Indication: DRUG USE FOR UNKNOWN INDICATION
     Route: 065
     Dates: start: 20080401, end: 20080715
  2. ACCUTANE [Suspect]
     Route: 065
     Dates: start: 20080818
  3. CONTRACEPTIVE PILL [Concomitant]
     Route: 048
     Dates: start: 20080301, end: 20080701
  4. CONTRACEPTIVE PILL [Concomitant]
     Route: 048
     Dates: start: 20080818

REACTIONS (1)
  - ABORTION INDUCED [None]
